FAERS Safety Report 7363395-5 (Version None)
Quarter: 2011Q1

REPORT INFORMATION
  Report Type: 
  Country: None (occurrence: None)
  Receive Date: 20110321
  Receipt Date: 20110315
  Transmission Date: 20110831
  Serious: No
  Sender: FDA-Public Use
  Company Number: US-PFIZER INC-2011057142

PATIENT
  Sex: Male
  Weight: 90.7 kg

DRUGS (7)
  1. LIPITOR [Concomitant]
     Dosage: UNK
  2. LISINOPRIL [Concomitant]
     Dosage: UNK
  3. HUMALOG [Concomitant]
     Indication: DIABETES MELLITUS
     Dosage: UNK
  4. PROTONIX [Suspect]
     Indication: GASTRITIS EROSIVE
     Dosage: 40 MG, DAILY
     Route: 048
     Dates: start: 20100401
  5. VERAPAMIL [Concomitant]
     Dosage: UNK
  6. PLAVIX [Concomitant]
     Dosage: UNK
  7. BUPROPION [Concomitant]
     Dosage: UNK

REACTIONS (3)
  - ARTHRALGIA [None]
  - BREAST PAIN [None]
  - BREAST TENDERNESS [None]
